FAERS Safety Report 7975929-8 (Version None)
Quarter: 2011Q4

REPORT INFORMATION
  Report Type: 
  Country: None (occurrence: None)
  Receive Date: 20111213
  Receipt Date: 20111007
  Transmission Date: 20120403
  Serious: No
  Sender: FDA-Public Use
  Company Number: US-AMGEN-USASP2011052021

PATIENT
  Sex: Female
  Weight: 62.1 kg

DRUGS (21)
  1. ASACOL [Concomitant]
  2. THYROID TAB [Concomitant]
  3. VITRON C [Concomitant]
     Dosage: 1 UNK, UNK
  4. OSSOPAN                            /00615501/ [Concomitant]
  5. METHOTREXATE [Concomitant]
  6. SERIPHOS [Concomitant]
     Dosage: 1 UNK, UNK
  7. ONCO CARBIDE [Concomitant]
     Dosage: 1 UNK, UNK
  8. ZYRTEC-D 12 HOUR [Concomitant]
     Dosage: 1 UNK, UNK
  9. METHYL B12 [Concomitant]
     Dosage: 1 UNK, UNK
  10. CO-Q10-CHLORELLA [Concomitant]
     Dosage: 1 UNK, UNK
  11. CARISOPRODOL [Concomitant]
  12. VITAMIN E                          /00110501/ [Concomitant]
  13. IBUPROFEN [Concomitant]
  14. VITAMIN D [Concomitant]
     Dosage: 1 UNK, UNK
  15. ENBREL [Suspect]
     Indication: RHEUMATOID ARTHRITIS
     Dosage: 50 MG, 2 TIMES/WK
     Route: 058
     Dates: start: 20100401
  16. HUMIRA [Concomitant]
  17. HYDROXYCHLOROQUINE [Concomitant]
  18. LEUKOVORIN [Concomitant]
  19. PROBIOTICS [Concomitant]
  20. CREON [Concomitant]
  21. ZEVALIN [Concomitant]

REACTIONS (9)
  - DIZZINESS [None]
  - NAUSEA [None]
  - FATIGUE [None]
  - ERYTHEMA [None]
  - INSOMNIA [None]
  - ABDOMINAL DISCOMFORT [None]
  - RHEUMATOID ARTHRITIS [None]
  - PRURITUS [None]
  - URTICARIA [None]
